FAERS Safety Report 25273261 (Version 1)
Quarter: 2025Q2

REPORT INFORMATION
  Report Type: Spontaneous
  Country: US (occurrence: US)
  Receive Date: 20250506
  Receipt Date: 20250506
  Transmission Date: 20250716
  Serious: No
  Sender: AMNEAL
  Company Number: US-AMNEAL PHARMACEUTICALS-2024-AMRX-02119

PATIENT
  Sex: Male
  Weight: 28.707 kg

DRUGS (2)
  1. VIGABATRIN [Suspect]
     Active Substance: VIGABATRIN
     Indication: Product used for unknown indication
     Route: 048
  2. PEPCID AC [Concomitant]
     Active Substance: FAMOTIDINE
     Indication: Product used for unknown indication
     Route: 048

REACTIONS (4)
  - Irritability [Unknown]
  - Vomiting [Unknown]
  - Pain [Unknown]
  - Anger [Unknown]
